FAERS Safety Report 8552328 (Version 3)
Quarter: 2013Q1

REPORT INFORMATION
  Report Type: Report from Study
  Country: DE (occurrence: DE)
  Receive Date: 20120508
  Receipt Date: 20130128
  Transmission Date: 20140127
  Serious: Yes (Hospitalization)
  Sender: FDA-Public Use
  Company Number: DE-ACTELION-A-US2012-65117

PATIENT
  Age: 23 Year
  Sex: Female

DRUGS (2)
  1. VENTAVIS [Suspect]
     Indication: PULMONARY ARTERIAL HYPERTENSION
     Dosage: 5 ?G, Q4H
     Route: 055
     Dates: start: 20120314
  2. ADCIRCA [Concomitant]

REACTIONS (2)
  - Diabetes mellitus [Unknown]
  - Anaphylactic shock [Unknown]
